FAERS Safety Report 17063625 (Version 1)
Quarter: 2019Q4

REPORT INFORMATION
  Report Type: Spontaneous
  Country: US (occurrence: US)
  Receive Date: 20191122
  Receipt Date: 20191122
  Transmission Date: 20200122
  Serious: No
  Sender: FDA-Public Use
  Company Number: US-MYLANLABS-2019M1110575

PATIENT
  Age: 57 Year
  Sex: Male
  Weight: 97 kg

DRUGS (1)
  1. MIACALCIN [Suspect]
     Active Substance: CALCITONIN SALMON
     Indication: HYPERCALCAEMIA
     Dosage: 400, ONCE (ONE TIME INJECTION)
     Route: 042
     Dates: start: 20191113, end: 20191113

REACTIONS (1)
  - Incorrect route of product administration [Unknown]

NARRATIVE: CASE EVENT DATE: 20191113
